FAERS Safety Report 15022570 (Version 1)
Quarter: 2018Q2

REPORT INFORMATION
  Report Type: Spontaneous
  Country: US (occurrence: US)
  Receive Date: 20180524
  Receipt Date: 20180524
  Transmission Date: 20180711
  Serious: No
  Sender: FDA-Public Use
  Company Number: None

PATIENT
  Age: 50 Year
  Sex: Female
  Weight: 60.78 kg

DRUGS (1)
  1. GLATIRAMER 40 MG TEVA [Suspect]
     Active Substance: GLATIRAMER
     Indication: MULTIPLE SCLEROSIS
     Route: 058
     Dates: start: 20180308

REACTIONS (3)
  - Injection site swelling [None]
  - Injection site mass [None]
  - Injection site pain [None]

NARRATIVE: CASE EVENT DATE: 20180308
